FAERS Safety Report 9333502 (Version 2)
Quarter: 2014Q2

REPORT INFORMATION
  Report Type: Spontaneous
  Country: US (occurrence: None)
  Receive Date: 20130604
  Receipt Date: 20140530
  Transmission Date: 20141212
  Serious: Yes (Hospitalization)
  Sender: FDA-Public Use
  Company Number: 2013AP005646

PATIENT
  Age: 80 Year
  Sex: Male

DRUGS (5)
  1. OLANZAPINE (OLANZAPINE) TABLET [Suspect]
     Indication: BIPOLAR DISORDER
     Dosage: UNKNOWN, UNKNOWN
  2. ASPIRIN [Concomitant]
  3. AMLODIPINE [Concomitant]
  4. INSULIN [Concomitant]
  5. DONEPEZIL [Concomitant]

REACTIONS (8)
  - Hypothermia [None]
  - Sepsis [None]
  - Dyspnoea [None]
  - Mental status changes [None]
  - Heart rate decreased [None]
  - Respiratory distress [None]
  - Disorientation [None]
  - Blood potassium increased [None]
